FAERS Safety Report 8842400 (Version 1)
Quarter: 2012Q4

REPORT INFORMATION
  Report Type: Spontaneous
  Country: US (occurrence: None)
  Receive Date: 20121015
  Receipt Date: 20121015
  Transmission Date: 20130627
  Serious: Yes (Other)
  Sender: FDA-Public Use
  Company Number: None

PATIENT
  Age: 70 Year
  Sex: Male
  Weight: 127.01 kg

DRUGS (1)
  1. POTASSIUM DICHROMATE [Suspect]
     Route: 045

REACTIONS (2)
  - Product formulation issue [None]
  - No adverse event [None]
